FAERS Safety Report 19488908 (Version 1)
Quarter: 2021Q3

REPORT INFORMATION
  Report Type: Spontaneous
  Country: US (occurrence: US)
  Receive Date: 20210702
  Receipt Date: 20210702
  Transmission Date: 20211014
  Serious: No
  Sender: FDA-Public Use
  Company Number: US-ELI_LILLY_AND_COMPANY-US202106003801

PATIENT
  Age: 62 Year
  Sex: Female

DRUGS (4)
  1. HUMULIN R U?500 [Suspect]
     Active Substance: INSULIN HUMAN
     Indication: DIABETES MELLITUS
     Dosage: 200 U, DAILY ( MORNING ?75U, LUNCH? 45U, DINNER ?35U , NIGHT? 20U)
     Route: 058
     Dates: start: 2017
  2. HUMULIN R U?500 [Suspect]
     Active Substance: INSULIN HUMAN
     Dosage: 200 U, DAILY ( MORNING ?75U, LUNCH? 45U, DINNER ?35U , NIGHT? 20U)
     Route: 058
     Dates: start: 2017
  3. HUMULIN R U?500 [Suspect]
     Active Substance: INSULIN HUMAN
     Dosage: 200 U, DAILY ( MORNING ?75U, LUNCH? 45U, DINNER ?35U , NIGHT? 20U)
     Route: 058
     Dates: start: 2017
  4. HUMULIN R U?500 [Suspect]
     Active Substance: INSULIN HUMAN
     Indication: DIABETES MELLITUS
     Dosage: 200 U, DAILY ( MORNING ?75U, LUNCH? 45U, DINNER ?35U , NIGHT? 20U)
     Route: 058
     Dates: start: 2017

REACTIONS (2)
  - Blood glucose increased [Recovering/Resolving]
  - Incorrect dose administered [Unknown]

NARRATIVE: CASE EVENT DATE: 20210604
